FAERS Safety Report 25616765 (Version 2)
Quarter: 2025Q3

REPORT INFORMATION
  Report Type: Spontaneous
  Country: CN (occurrence: CN)
  Receive Date: 20250729
  Receipt Date: 20250825
  Transmission Date: 20251020
  Serious: Yes (Hospitalization, Other)
  Sender: ACCORD
  Company Number: CN-Accord-496364

PATIENT
  Age: 37 Year
  Sex: Male

DRUGS (3)
  1. CARBOPLATIN [Suspect]
     Active Substance: CARBOPLATIN
     Indication: Lung adenocarcinoma stage IV
     Dosage: 21 DAYS FOR ONE CYCLE, AND 6 CYCLES OF CONTINUOUS CHEMOTHERAPY
     Dates: start: 2024
  2. PEMETREXED [Suspect]
     Active Substance: PEMETREXED
     Indication: Lung adenocarcinoma stage IV
     Dosage: 21 DAYS FOR ONE CYCLE, AND 6 CYCLES OF CONTINUOUS CHEMO  THERAPY
     Dates: start: 2024
  3. OSIMERTINIB [Suspect]
     Active Substance: OSIMERTINIB
     Indication: Lung adenocarcinoma stage IV
     Dosage: LONG TERM MAINTENANCE THERAPY
     Route: 048
     Dates: start: 2024

REACTIONS (6)
  - Thrombosis [Recovered/Resolved]
  - Splenic infarction [Recovered/Resolved]
  - Jugular vein thrombosis [Recovered/Resolved]
  - Splenic artery thrombosis [Recovered/Resolved]
  - Splenic abscess [Recovered/Resolved]
  - Splenic embolism [Recovered/Resolved]

NARRATIVE: CASE EVENT DATE: 20241201
